FAERS Safety Report 19773635 (Version 1)
Quarter: 2021Q3

REPORT INFORMATION
  Report Type: Report from Study
  Country: GT (occurrence: GT)
  Receive Date: 20210901
  Receipt Date: 20210901
  Transmission Date: 20211014
  Serious: Yes (Other)
  Sender: FDA-Public Use
  Company Number: NVSC2021GT195006

PATIENT
  Age: 60 Year
  Sex: Female

DRUGS (1)
  1. VYMADA [Suspect]
     Active Substance: SACUBITRIL\VALSARTAN
     Indication: PRODUCT USED FOR UNKNOWN INDICATION
     Dosage: 0.5 DF, BID, 25 MG IN MORNING AND 25 MG IN THE NIGHT
     Route: 065
     Dates: start: 202008

REACTIONS (2)
  - Cardiac failure [Unknown]
  - Wrong technique in product usage process [Unknown]
